FAERS Safety Report 5018842-0 (Version None)
Quarter: 2006Q2

REPORT INFORMATION
  Report Type: 
  Country: None (occurrence: None)
  Receive Date: 20060530
  Receipt Date: 20060517
  Transmission Date: 20061013
  Serious: Yes (Other)
  Sender: FDA-Public Use
  Company Number: 163-C5013-06040755

PATIENT
  Age: 36 Year
  Sex: Female
  Weight: 64.8644 kg

DRUGS (15)
  1. REVLIMID [Suspect]
     Indication: MULTIPLE MYELOMA
     Dosage: 25 MG, QD, ORAL
     Route: 048
     Dates: start: 20050517, end: 20060315
  2. DEXAMETHASONE [Suspect]
     Indication: MULTIPLE MYELOMA
     Dosage: 40 MG, QD, ORAL
     Route: 048
     Dates: start: 20050517, end: 20060322
  3. DIFLUCAN [Concomitant]
  4. PRILOSEC [Concomitant]
  5. BACTRIM DS [Concomitant]
  6. ASPIRIN [Concomitant]
  7. ZOMETA [Concomitant]
  8. ARANESP [Concomitant]
  9. PERCOCET [Concomitant]
  10. MYCELEX [Concomitant]
  11. FOLTX (TRIOBE) (TABLETS) [Concomitant]
  12. IRON (FERROUS GLUCONATE) (IRON) [Concomitant]
  13. VELCADE [Concomitant]
  14. DEXAMETHASONE [Concomitant]
  15. BIAXIN [Suspect]
     Indication: MULTIPLE MYELOMA
     Dosage: 500 MG, BID, ORAL
     Route: 048
     Dates: start: 20050517, end: 20060322

REACTIONS (3)
  - ABORTION INDUCED [None]
  - DRUG EXPOSURE DURING PREGNANCY [None]
  - PREGNANCY [None]
